FAERS Safety Report 10257358 (Version 1)
Quarter: 2014Q2

REPORT INFORMATION
  Report Type: Spontaneous
  Country: US (occurrence: None)
  Receive Date: 20140623
  Receipt Date: 20140623
  Transmission Date: 20141212
  Serious: No
  Sender: FDA-Public Use
  Company Number: None

PATIENT
  Sex: Male
  Weight: 58.06 kg

DRUGS (5)
  1. ZONEGRAN [Suspect]
  2. PHENOBARBITAL [Suspect]
  3. KEPPRA [Suspect]
  4. KLONOPIN [Suspect]
  5. NEURONTIN [Suspect]

REACTIONS (3)
  - Drug ineffective [None]
  - Psychomotor hyperactivity [None]
  - Treatment failure [None]
